FAERS Safety Report 19872042 (Version 1)
Quarter: 2021Q3

REPORT INFORMATION
  Report Type: Spontaneous
  Country: US (occurrence: US)
  Receive Date: 20210923
  Receipt Date: 20210923
  Transmission Date: 20211014
  Serious: Yes (Hospitalization, Disabling)
  Sender: FDA-Public Use
  Company Number: None

PATIENT
  Age: 59 Year
  Sex: Male
  Weight: 60.75 kg

DRUGS (13)
  1. LISINOPRIL. [Concomitant]
     Active Substance: LISINOPRIL
  2. HAWTHORN [Concomitant]
     Active Substance: CRATAEGUS LAEVIGATA FRUIT
  3. TURMERIC [Concomitant]
     Active Substance: HERBALS\TURMERIC
  4. CAYENNE [Concomitant]
     Active Substance: CAPSICUM\HERBALS
  5. SERTRALINE [Concomitant]
     Active Substance: SERTRALINE HYDROCHLORIDE
  6. GINGER. [Concomitant]
     Active Substance: GINGER
  7. GARLIC. [Concomitant]
     Active Substance: GARLIC
  8. PROBIOTIC [Concomitant]
     Active Substance: PROBIOTICS NOS
  9. ARIPIPRAZOLE. [Suspect]
     Active Substance: ARIPIPRAZOLE
     Indication: PSYCHOTIC DISORDER
     Dosage: ?          QUANTITY:1 TABLET(S);?
     Route: 048
     Dates: start: 20110901
  10. METFORMIN [Concomitant]
     Active Substance: METFORMIN HYDROCHLORIDE
  11. GRAPEFRUIT SEED EXTRACT [Concomitant]
     Active Substance: GRAPEFRUIT SEED EXTRACT
  12. ARIPIPRAZOLE. [Suspect]
     Active Substance: ARIPIPRAZOLE
     Indication: DEPRESSION
     Dosage: ?          QUANTITY:1 TABLET(S);?
     Route: 048
     Dates: start: 20110901
  13. SPIRULINA [Concomitant]
     Active Substance: HERBALS\SPIRULINA

REACTIONS (2)
  - Blood glucose increased [None]
  - Blood pressure increased [None]

NARRATIVE: CASE EVENT DATE: 20210922
